FAERS Safety Report 6169169-5 (Version None)
Quarter: 2009Q2

REPORT INFORMATION
  Report Type: 
  Country: None (occurrence: None)
  Receive Date: 20090427
  Receipt Date: 20090420
  Transmission Date: 20091009
  Serious: Yes (Death)
  Sender: FDA-Public Use
  Company Number: KH-B.I. PHARMACEUTICALS,INC./RIDGEFIELD-2009-DE-03235GD

PATIENT
  Age: 25 Day
  Sex: Male

DRUGS (4)
  1. NEVIRAPINE [Suspect]
     Indication: PROPHYLAXIS
     Dosage: 2 MG/KG
  2. NEVIRAPINE [Suspect]
     Indication: HUMAN IMMUNODEFICIENCY VIRUS TRANSMISSION
  3. ZIDOVUDINE [Suspect]
     Indication: PROPHYLAXIS
     Dosage: 8 MG/KG
     Route: 048
  4. ZIDOVUDINE [Suspect]
     Indication: HUMAN IMMUNODEFICIENCY VIRUS TRANSMISSION

REACTIONS (3)
  - MENINGITIS BACTERIAL [None]
  - MENINGITIS HAEMOPHILUS [None]
  - MENINGITIS NEONATAL [None]
